FAERS Safety Report 4870102-4 (Version None)
Quarter: 2005Q4

REPORT INFORMATION
  Report Type: 
  Country: None (occurrence: None)
  Receive Date: 20051227
  Receipt Date: 20051215
  Transmission Date: 20060501
  Serious: Yes (Other)
  Sender: FDA-Public Use
  Company Number: 2005169107

PATIENT
  Age: 57 Year
  Sex: Female
  Weight: 86.1834 kg

DRUGS (7)
  1. BENADRYL [Suspect]
     Indication: HYPERSENSITIVITY
     Dosage: 2 ULTRATABS EVERY 4 HOURS, ORAL
     Route: 048
     Dates: start: 20051205
  2. HYDROCORTISONE [Suspect]
     Indication: HYPERSENSITIVITY
     Dosage: ONE INJECTION ONCE
     Dates: start: 20051206
  3. PREDNISONE TAB [Suspect]
     Indication: HYPERSENSITIVITY
     Dosage: 20 MG, TAPERED DOSING REGIMEN, ORAL
     Route: 048
     Dates: start: 20051209
  4. BENADRYL [Suspect]
     Indication: HYPERSENSITIVITY
     Dosage: INTRAVENOUS
     Route: 042
     Dates: start: 20051209
  5. FAMOTIDINE [Suspect]
     Dosage: INTRAVENOUS
     Route: 042
     Dates: start: 20051209
  6. CONJUGATED ESTROGENS [Concomitant]
  7. LEVOTHYROXINE SODIUM [Concomitant]

REACTIONS (4)
  - CONDITION AGGRAVATED [None]
  - FOOD ALLERGY [None]
  - HYPERSENSITIVITY [None]
  - MILK ALLERGY [None]
